FAERS Safety Report 8552723-0 (Version None)
Quarter: 2012Q3

REPORT INFORMATION
  Report Type: 
  Country: None (occurrence: None)
  Receive Date: 20120731
  Receipt Date: 20120723
  Transmission Date: 20120928
  Serious: Yes (Hospitalization)
  Sender: FDA-Public Use
  Company Number: PHHO2008IT09320

PATIENT
  Sex: Female
  Weight: 68 kg

DRUGS (5)
  1. TENORMIN [Concomitant]
     Indication: HYPERTENSION
  2. QUINAZIL [Concomitant]
     Indication: HYPERTENSION
  3. LETROZOLE [Suspect]
     Dosage: 2.5 MG, QD
     Route: 048
     Dates: start: 20120720
  4. LETROZOLE [Suspect]
     Indication: BREAST CANCER
     Dosage: 2.5 MG, QD
     Route: 048
     Dates: start: 20070807
  5. METFORMIN HYDROCHLORIDE [Concomitant]
     Indication: TYPE 2 DIABETES MELLITUS

REACTIONS (2)
  - CARDIAC FAILURE CONGESTIVE [None]
  - ATRIAL FIBRILLATION [None]
